FAERS Safety Report 4978338-9 (Version None)
Quarter: 2006Q2

REPORT INFORMATION
  Report Type: 
  Country: None (occurrence: None)
  Receive Date: 20060414
  Receipt Date: 20060329
  Transmission Date: 20061013
  Serious: Yes (Death, Life-Threatening, Hospitalization, Other)
  Sender: FDA-Public Use
  Company Number: DE-2005-028013

PATIENT
  Age: 79 Year
  Sex: Female
  Weight: 57 kg

DRUGS (14)
  1. CAMPATH [Suspect]
     Indication: CHRONIC LYMPHOCYTIC LEUKAEMIA
     Dosage: SEE IMAGE
     Route: 042
     Dates: start: 20021016, end: 20021018
  2. CAMPATH [Suspect]
     Indication: CHRONIC LYMPHOCYTIC LEUKAEMIA
     Dosage: SEE IMAGE
     Route: 042
     Dates: start: 20050101, end: 20050201
  3. CAMPATH [Suspect]
     Indication: CHRONIC LYMPHOCYTIC LEUKAEMIA
     Dosage: SEE IMAGE
     Route: 042
     Dates: start: 20050804, end: 20051130
  4. PALLADONE [Concomitant]
  5. ESPUMISAN (DIMETICONE) [Concomitant]
  6. POSTADOXINE (MECLOZINE HYDROCHLORIDE, PYRIDOXINE) [Concomitant]
  7. LEVODOPA (LEVODOPA) [Concomitant]
  8. TROMCARDIN (MAGNESIUM ASPARTATE, ASPARTATE POTASSIUM) [Concomitant]
  9. FOSAMAX [Concomitant]
  10. BEOFENAC (ACECLOFENAC) [Concomitant]
  11. ASPIRIN [Concomitant]
  12. FAMVIR [Concomitant]
  13. ALLOPURINOL [Concomitant]
  14. RIFUNN (PANTOPRAZOLE SODIUM) [Concomitant]

REACTIONS (11)
  - COLITIS ULCERATIVE [None]
  - CROHN'S DISEASE [None]
  - DIARRHOEA HAEMORRHAGIC [None]
  - DRUG INEFFECTIVE [None]
  - GASTROINTESTINAL HAEMORRHAGE [None]
  - GENERAL PHYSICAL HEALTH DETERIORATION [None]
  - INFECTION [None]
  - LARGE INTESTINE PERFORATION [None]
  - LEUKOPENIA [None]
  - PNEUMONIA [None]
  - SEPTIC SHOCK [None]
